FAERS Safety Report 10206936 (Version 1)
Quarter: 2014Q2

REPORT INFORMATION
  Report Type: Spontaneous
  Country: IT (occurrence: IT)
  Receive Date: 20140530
  Receipt Date: 20140530
  Transmission Date: 20141212
  Serious: Yes (Other)
  Sender: FDA-Public Use
  Company Number: IT-SA-2014SA065457

PATIENT
  Age: 79 Year
  Sex: Male

DRUGS (2)
  1. LANTUS [Suspect]
     Indication: DIABETES MELLITUS
     Route: 058
     Dates: start: 20130101, end: 20130918
  2. INSULIN [Suspect]
     Indication: DIABETES MELLITUS
     Route: 058
     Dates: start: 20130101, end: 20130918

REACTIONS (3)
  - Loss of consciousness [Recovering/Resolving]
  - Road traffic accident [Recovering/Resolving]
  - Hypoglycaemia [Recovering/Resolving]
